FAERS Safety Report 9256353 (Version 2)
Quarter: 2013Q2

REPORT INFORMATION
  Report Type: Spontaneous
  Country: US (occurrence: US)
  Receive Date: 20130425
  Receipt Date: 20130516
  Transmission Date: 20140414
  Serious: Yes (Other)
  Sender: FDA-Public Use
  Company Number: US-AMGEN-USASP2013025980

PATIENT
  Age: 48 Year
  Sex: Female
  Weight: 71.2 kg

DRUGS (6)
  1. ENBREL [Suspect]
     Indication: RHEUMATOID ARTHRITIS
     Dosage: 50 MG, QWK
     Dates: start: 20130308
  2. METHOTREXATE [Concomitant]
     Dosage: 2.5 MG, UNK
     Route: 048
  3. DICLOFENAC SODIUM [Concomitant]
     Dosage: 75 MG, UNK
     Route: 048
  4. HYDROCODONE [Concomitant]
     Dosage: 75-750, MG
     Route: 048
  5. PREDNISONE [Concomitant]
     Dosage: 1 MG, UNK
     Route: 048
  6. IBUPROFEN [Concomitant]
     Dosage: 600 MG, UNK
     Route: 048

REACTIONS (8)
  - Loss of consciousness [Recovered/Resolved]
  - Convulsion [Recovered/Resolved]
  - Arthralgia [Recovered/Resolved]
  - Pain in extremity [Recovered/Resolved]
  - Paraesthesia oral [Recovered/Resolved]
  - Speech disorder [Not Recovered/Not Resolved]
  - Tooth infection [Recovered/Resolved]
  - Paraesthesia [Recovered/Resolved]
